FAERS Safety Report 20600900 (Version 1)
Quarter: 2022Q1

REPORT INFORMATION
  Report Type: Spontaneous
  Country: US (occurrence: US)
  Receive Date: 20220316
  Receipt Date: 20220316
  Transmission Date: 20220423
  Serious: Yes (Other)
  Sender: FDA-Public Use
  Company Number: US-HORIZON THERAPEUTICS-HZN-2022-001883

PATIENT

DRUGS (1)
  1. PENNSAID [Suspect]
     Active Substance: DICLOFENAC SODIUM
     Indication: Osteoarthritis
     Dosage: UNK, BID, APPLY BID
     Route: 065

REACTIONS (3)
  - Seizure [Unknown]
  - Scleroderma [Unknown]
  - Vertigo [Unknown]

NARRATIVE: CASE EVENT DATE: 20220309
